FAERS Safety Report 6686952-8 (Version None)
Quarter: 2010Q2

REPORT INFORMATION
  Report Type: 
  Country: None (occurrence: None)
  Receive Date: 20100419
  Receipt Date: 20100409
  Transmission Date: 20101027
  Serious: Yes (Hospitalization)
  Sender: FDA-Public Use
  Company Number: PHHO2010DE03907

PATIENT
  Age: 73 Year
  Sex: Female
  Weight: 67 kg

DRUGS (6)
  1. AFINITOR [Suspect]
     Indication: HEPATIC CANCER METASTATIC
     Dosage: 5 MG/DAY
     Route: 048
     Dates: start: 20100224, end: 20100310
  2. AFINITOR [Suspect]
     Dosage: UNK
     Dates: start: 20100312
  3. AVASTIN COMP-AVA+ [Suspect]
     Indication: HEPATIC CANCER METASTATIC
     Dosage: 5 MG/KG EVERY 14 DAYS
     Route: 048
  4. SPIRONOLACTONE [Concomitant]
     Indication: OEDEMA
  5. TORSEMIDE [Concomitant]
     Indication: OEDEMA
  6. PANTOPRAZOLE [Concomitant]
     Indication: GASTRITIS

REACTIONS (11)
  - ANAEMIA [None]
  - CELLS IN URINE [None]
  - DYSPNOEA [None]
  - FATIGUE [None]
  - INFLAMMATION [None]
  - LUNG INFILTRATION [None]
  - MALAISE [None]
  - OEDEMA PERIPHERAL [None]
  - PNEUMONIA FUNGAL [None]
  - PNEUMONITIS [None]
  - URINARY TRACT INFECTION [None]
